FAERS Safety Report 5410070-X (Version None)
Quarter: 2007Q3

REPORT INFORMATION
  Report Type: 
  Country: None (occurrence: None)
  Receive Date: 20070713
  Receipt Date: 20070405
  Transmission Date: 20080115
  Serious: No
  Sender: FDA-Public Use
  Company Number: 2007SP001262

PATIENT
  Age: 50 Year
  Sex: Male

DRUGS (3)
  1. LUNESTA [Suspect]
     Indication: INSOMNIA
     Dosage: 3 MG;HS;ORAL
     Route: 048
     Dates: start: 20050426, end: 20050401
  2. WELLBUTRIN [Concomitant]
  3. LORAZEPAM [Concomitant]

REACTIONS (1)
  - DYSGEUSIA [None]
